FAERS Safety Report 14455813 (Version 7)
Quarter: 2018Q2

REPORT INFORMATION
  Report Type: Spontaneous
  Country: FR (occurrence: FR)
  Receive Date: 20180130
  Receipt Date: 20180622
  Transmission Date: 20180711
  Serious: Yes (Life-Threatening, Hospitalization)
  Sender: FDA-Public Use
  Company Number: FR-BAXTER-2018BAX003005

PATIENT
  Age: 86 Year
  Sex: Male
  Weight: 70 kg

DRUGS (21)
  1. GLUCOSE 5 % BIOPERF, SOLUTION POUR PERFUSION [Suspect]
     Active Substance: DEXTROSE
     Indication: VEHICLE SOLUTION USE
     Route: 065
     Dates: start: 20180112, end: 20180112
  2. HEPARIN [Concomitant]
     Active Substance: HEPARIN SODIUM
     Indication: PRODUCT USED FOR UNKNOWN INDICATION
     Dosage: 1.5 ML/HOUR; DURING DIALYSIS SESSION (DILUTION : 500 IU/ML - 1.5 ML/H)
     Route: 042
     Dates: start: 20160622
  3. MOPRAL [Concomitant]
     Active Substance: OMEPRAZOLE
     Indication: PRODUCT USED FOR UNKNOWN INDICATION
     Dosage: (MICROGRANULES GASTRORESISTANTS)
     Route: 048
     Dates: start: 20160629
  4. PERMIXON [Concomitant]
     Active Substance: HERBALS\SAW PALMETTO
     Indication: PRODUCT USED FOR UNKNOWN INDICATION
     Dosage: IN THE MORNING AND IN THE EVENING
     Route: 065
     Dates: start: 20160629
  5. KARDEGIC [Concomitant]
     Active Substance: ASPIRIN DL-LYSINE
     Indication: PRODUCT USED FOR UNKNOWN INDICATION
     Route: 048
     Dates: start: 20160629
  6. FER [Concomitant]
     Dosage: STRENGTH: 100 MG/5 ML
     Route: 065
  7. HEPARIN [Suspect]
     Active Substance: HEPARIN SODIUM
     Indication: PRODUCT USED FOR UNKNOWN INDICATION
     Dosage: 1.5 ML/HOUR; DURING DIALYSIS SESSION
     Route: 042
  8. XATRAL LP [Concomitant]
     Active Substance: ALFUZOSIN
     Indication: PRODUCT USED FOR UNKNOWN INDICATION
     Dosage: 1 CAPSULE IN THE MORNING AND 1 CAPSULE IN THE EVENING
     Route: 065
     Dates: start: 20160629
  9. LASILIX [Concomitant]
     Active Substance: FUROSEMIDE
     Indication: PRODUCT USED FOR UNKNOWN INDICATION
     Dosage: IN THE MORNING
     Route: 065
     Dates: start: 20160817
  10. LYRICA [Concomitant]
     Active Substance: PREGABALIN
     Indication: PRODUCT USED FOR UNKNOWN INDICATION
     Dosage: IN THE EVENING
     Route: 048
     Dates: start: 20161123
  11. IMOVANE [Concomitant]
     Active Substance: ZOPICLONE
     Indication: PRODUCT USED FOR UNKNOWN INDICATION
     Dosage: AT BEDTIME
     Route: 048
     Dates: start: 20160629
  12. CARDENSIEL [Concomitant]
     Active Substance: BISOPROLOL FUMARATE
     Indication: PRODUCT USED FOR UNKNOWN INDICATION
     Dosage: IN THE MORNING, SCORED FILM COATED TABLET
     Route: 048
     Dates: start: 20170925
  13. ROCEPHINE [Concomitant]
     Active Substance: CEFTRIAXONE SODIUM
     Indication: PRODUCT USED FOR UNKNOWN INDICATION
     Dosage: 1 G/10 ML POWDER AND DILUENT FOR SC IV INJECTION
     Route: 065
  14. ROCEPHINE [Suspect]
     Active Substance: CEFTRIAXONE SODIUM
     Indication: PRODUCT USED FOR UNKNOWN INDICATION
     Dosage: 1 G/10 ML POWDER AND DILUENT FOR SC IV INJECTION AND 1G IN 3 MINUTES AFTER DIALYSIS
     Route: 040
     Dates: start: 20180112, end: 20180112
  15. FER [Concomitant]
     Indication: PRODUCT USED FOR UNKNOWN INDICATION
     Dosage: STRENGTH: 100 MG/5 ML (5 AMPOULES OF 5 ML TO BE DILUTED FOR INTRAVENOUS INFUSION OF 100ML), DOSE: 1
     Route: 041
     Dates: start: 20170908
  16. CEFTRIAXONE PANPHARMA [Suspect]
     Active Substance: CEFTRIAXONE
     Indication: BRONCHITIS
     Dosage: 1G IN 3 MINUTES AFTER DIALYSIS
     Route: 040
     Dates: start: 20180112, end: 20180112
  17. PLAVIX [Concomitant]
     Active Substance: CLOPIDOGREL BISULFATE
     Indication: PRODUCT USED FOR UNKNOWN INDICATION
     Route: 065
     Dates: start: 20160629
  18. SPECIAFOLDINE 5 [Concomitant]
     Indication: PRODUCT USED FOR UNKNOWN INDICATION
     Dosage: FOR 92 DAYS
     Route: 065
     Dates: start: 20180108
  19. GALVUS [Concomitant]
     Active Substance: VILDAGLIPTIN
     Indication: PRODUCT USED FOR UNKNOWN INDICATION
     Dosage: IN THE MORNING
     Route: 048
     Dates: start: 20160629
  20. XATRAL LP [Concomitant]
     Active Substance: ALFUZOSIN
     Dosage: IN THE EVENING
     Route: 065
  21. LASILIX [Concomitant]
     Active Substance: FUROSEMIDE
     Route: 048

REACTIONS (9)
  - Erythema [Recovered/Resolved]
  - Circulatory collapse [Recovered/Resolved]
  - Respiratory distress [Recovered/Resolved]
  - Condition aggravated [Unknown]
  - Rales [Unknown]
  - Swelling face [Recovered/Resolved]
  - Drug hypersensitivity [Recovered/Resolved]
  - Loss of consciousness [Recovered/Resolved]
  - Respiratory disorder [Recovering/Resolving]

NARRATIVE: CASE EVENT DATE: 20180112
